FAERS Safety Report 5689519-3 (Version None)
Quarter: 2008Q1

REPORT INFORMATION
  Report Type: 
  Country: None (occurrence: None)
  Receive Date: 20080331
  Receipt Date: 20080319
  Transmission Date: 20080703
  Serious: Yes (Life-Threatening, Hospitalization)
  Sender: FDA-Public Use
  Company Number: CH-PFIZER INC-2008026144

PATIENT
  Age: 16 Year
  Sex: Male

DRUGS (12)
  1. PROSTIN E2 [Suspect]
     Indication: LIVER TRANSPLANT
     Dosage: FREQ:DAILY; EVERY DAY
     Route: 042
     Dates: start: 20080124, end: 20080127
  2. SIMULECT [Suspect]
     Indication: LIVER TRANSPLANT
     Dates: start: 20080124, end: 20080124
  3. SIMULECT [Suspect]
     Dates: start: 20080128, end: 20080128
  4. VANCOMYCIN [Suspect]
     Route: 042
  5. ROCEPHIN [Concomitant]
     Route: 042
     Dates: start: 20080124, end: 20080124
  6. METRONIDAZOLE HCL [Concomitant]
     Route: 042
  7. MERONEM [Concomitant]
     Route: 042
  8. DIFLUCAN [Concomitant]
     Dates: start: 20080125, end: 20080131
  9. CYMEVENE [Concomitant]
  10. DOBUTAMINE HCL [Concomitant]
     Route: 042
     Dates: start: 20080124, end: 20080203
  11. NORADRENALINE [Concomitant]
     Route: 042
     Dates: start: 20080124, end: 20080203
  12. APRICAL [Concomitant]
     Dates: start: 20080128, end: 20080128

REACTIONS (3)
  - HAEMODYNAMIC INSTABILITY [None]
  - PYREXIA [None]
  - SYSTEMIC INFLAMMATORY RESPONSE SYNDROME [None]
